FAERS Safety Report 8243312-6 (Version None)
Quarter: 2012Q1

REPORT INFORMATION
  Report Type: 
  Country: None (occurrence: None)
  Receive Date: 20120329
  Receipt Date: 20120314
  Transmission Date: 20120608
  Serious: Yes (Hospitalization, Other)
  Sender: FDA-Public Use
  Company Number: US-ROCHE-1049337

PATIENT
  Sex: Male

DRUGS (4)
  1. DIAZEPAM [Suspect]
     Indication: PRODUCT USED FOR UNKNOWN INDICATION
  2. FAMOTIDINE [Concomitant]
  3. ZELBORAF [Suspect]
     Indication: MALIGNANT MELANOMA
     Route: 048
     Dates: start: 20120130, end: 20120302
  4. ACETAMINOPHEN [Concomitant]

REACTIONS (16)
  - DRUG ERUPTION [None]
  - MASS [None]
  - ORAL CANDIDIASIS [None]
  - NAUSEA [None]
  - OEDEMA PERIPHERAL [None]
  - ARTHRALGIA [None]
  - LEUKOCYTOSIS [None]
  - ADVERSE DRUG REACTION [None]
  - SKIN PAPILLOMA [None]
  - FATIGUE [None]
  - TACHYCARDIA [None]
  - HEADACHE [None]
  - PULMONARY EOSINOPHILIA [None]
  - PNEUMONIA [None]
  - ASTHENIA [None]
  - DYSPNOEA [None]
